FAERS Safety Report 5406751-4 (Version None)
Quarter: 2007Q3

REPORT INFORMATION
  Report Type: 
  Country: None (occurrence: None)
  Receive Date: 20070807
  Receipt Date: 20070803
  Transmission Date: 20080115
  Serious: Yes (Life-Threatening)
  Sender: FDA-Public Use
  Company Number: PHEH2007US10729

PATIENT

DRUGS (1)
  1. EXFORGE [Suspect]
     Indication: HYPERTENSION
     Dosage: UNK, QD

REACTIONS (3)
  - ARRHYTHMIA [None]
  - CARDIOVERSION [None]
  - TORSADE DE POINTES [None]
